FAERS Safety Report 7232455-1 (Version None)
Quarter: 2011Q1

REPORT INFORMATION
  Report Type: 
  Country: None (occurrence: None)
  Receive Date: 20110119
  Receipt Date: 20110113
  Transmission Date: 20110831
  Serious: No
  Sender: FDA-Public Use
  Company Number: US-PFIZER INC-2011009263

PATIENT
  Sex: Female

DRUGS (1)
  1. TOVIAZ [Suspect]
     Indication: HYPERTONIC BLADDER
     Dosage: UNK
     Route: 048
     Dates: start: 20101101

REACTIONS (5)
  - COUGH [None]
  - DRUG EFFECT DECREASED [None]
  - DYSPHONIA [None]
  - DRY MOUTH [None]
  - NOCTURIA [None]
